FAERS Safety Report 7642399-9 (Version None)
Quarter: 2011Q3

REPORT INFORMATION
  Report Type: 
  Country: None (occurrence: None)
  Receive Date: 20110728
  Receipt Date: 20100701
  Transmission Date: 20111222
  Serious: No
  Sender: FDA-Public Use
  Company Number: US-MYLANLABS-2010S1011898

PATIENT
  Age: 50 Year
  Sex: Female

DRUGS (1)
  1. LEVOTHYROXINE SODIUM [Suspect]
     Indication: HYPOTHYROIDISM
     Route: 048
     Dates: start: 20100615

REACTIONS (5)
  - BLISTER [None]
  - REACTION TO DRUG EXCIPIENTS [None]
  - PRURITUS [None]
  - RASH [None]
  - BURNING SENSATION [None]
